FAERS Safety Report 16753405 (Version 5)
Quarter: 2019Q4

REPORT INFORMATION
  Report Type: Report from Study
  Country: US (occurrence: US)
  Receive Date: 20190829
  Receipt Date: 20191011
  Transmission Date: 20200122
  Serious: Yes (Other)
  Sender: FDA-Public Use
  Company Number: US-BIOGEN-2019BI00769634

PATIENT
  Age: 52 Year
  Sex: Female

DRUGS (1)
  1. PLEGRIDY [Suspect]
     Active Substance: PEGINTERFERON BETA-1A
     Indication: MULTIPLE SCLEROSIS
     Route: 065
     Dates: start: 20190726, end: 20190803

REACTIONS (28)
  - Dehydration [Recovered/Resolved]
  - Feeding disorder [Recovered/Resolved]
  - Malaise [Recovered/Resolved]
  - Fluid intake reduced [Not Recovered/Not Resolved]
  - Temperature intolerance [Recovered/Resolved with Sequelae]
  - Drug intolerance [Recovered/Resolved with Sequelae]
  - Pyrexia [Recovered/Resolved]
  - Weight decreased [Recovered/Resolved]
  - Malaise [Recovered/Resolved]
  - Hyperhidrosis [Recovered/Resolved]
  - Decreased appetite [Not Recovered/Not Resolved]
  - Multiple sclerosis relapse [Recovered/Resolved]
  - Blood test abnormal [Recovered/Resolved]
  - Drug ineffective [Recovered/Resolved]
  - Swelling [Recovered/Resolved with Sequelae]
  - Injection site bruising [Not Recovered/Not Resolved]
  - Pain [Recovered/Resolved]
  - Headache [Not Recovered/Not Resolved]
  - Rash [Recovered/Resolved]
  - Hypophagia [Not Recovered/Not Resolved]
  - Fatigue [Recovered/Resolved]
  - Carbohydrate intolerance [Not Recovered/Not Resolved]
  - Asthenia [Recovered/Resolved]
  - Vomiting [Recovered/Resolved]
  - Influenza [Recovered/Resolved]
  - Blood glucose increased [Recovered/Resolved with Sequelae]
  - Urinary retention [Recovered/Resolved]
  - Nausea [Recovered/Resolved]

NARRATIVE: CASE EVENT DATE: 2019
